FAERS Safety Report 16817306 (Version 1)
Quarter: 2019Q4

REPORT INFORMATION
  Report Type: Spontaneous
  Country: US (occurrence: US)
  Receive Date: 20190917
  Receipt Date: 20190917
  Transmission Date: 20200122
  Serious: Yes (Other)
  Sender: FDA-Public Use
  Company Number: None

PATIENT
  Age: 45 Year
  Sex: Female
  Weight: 87.75 kg

DRUGS (7)
  1. PROPRANOLOL [Concomitant]
     Active Substance: PROPRANOLOL HYDROCHLORIDE
  2. ZYRTEC [Concomitant]
     Active Substance: CETIRIZINE HYDROCHLORIDE
  3. MIGRELIEF [Concomitant]
     Active Substance: DIETARY SUPPLEMENT
  4. SPIRULINA [Concomitant]
     Active Substance: SPIRULINA
  5. VITAMIN B [Concomitant]
     Active Substance: VITAMIN B
  6. RELPAX [Suspect]
     Active Substance: ELETRIPTAN HYDROBROMIDE
     Indication: MIGRAINE
     Dosage: ?          QUANTITY:1 TABLET(S);?
     Route: 048
     Dates: start: 20150514, end: 20190811
  7. VITAMIN C [Concomitant]
     Active Substance: ASCORBIC ACID

REACTIONS (6)
  - Gastrointestinal disorder [None]
  - Abdominal distension [None]
  - Diarrhoea [None]
  - Recalled product administered [None]
  - Abdominal pain upper [None]
  - Anal incontinence [None]

NARRATIVE: CASE EVENT DATE: 20190811
